FAERS Safety Report 19039877 (Version 1)
Quarter: 2021Q1

REPORT INFORMATION
  Report Type: Report from Study
  Country: US (occurrence: US)
  Receive Date: 20210322
  Receipt Date: 20210322
  Transmission Date: 20210420
  Serious: Yes (Hospitalization)
  Sender: FDA-Public Use
  Company Number: US-SHIRE-US201850534

PATIENT
  Age: 58 Year
  Sex: Male
  Weight: 53 kg

DRUGS (12)
  1. TEDUGLUTIDE [Suspect]
     Active Substance: TEDUGLUTIDE
     Indication: SHORT-BOWEL SYNDROME
     Dosage: 2.4 MILLIGRAM (TED DAILY DOSE MG KG 0.05, TED DOSES PER WEEK 7)
     Route: 065
     Dates: start: 20140626, end: 20140901
  2. ERAXIS [Concomitant]
     Active Substance: ANIDULAFUNGIN
     Indication: BACTERAEMIA
  3. VITAMINS NOS [Concomitant]
     Active Substance: VITAMINS
  4. TEDUGLUTIDE [Suspect]
     Active Substance: TEDUGLUTIDE
     Indication: SHORT-BOWEL SYNDROME
     Dosage: 2.4 MILLIGRAM (TED DAILY DOSE MG KG 0.05, TED DOSES PER WEEK 7)
     Route: 065
     Dates: start: 20140626, end: 20140901
  5. TEDUGLUTIDE [Suspect]
     Active Substance: TEDUGLUTIDE
     Indication: SHORT-BOWEL SYNDROME
     Dosage: 2.4 MILLIGRAM (TED DAILY DOSE MG KG 0.05, TED DOSES PER WEEK 7)
     Route: 065
     Dates: start: 20140626, end: 20140901
  6. TEDUGLUTIDE [Suspect]
     Active Substance: TEDUGLUTIDE
     Indication: SHORT-BOWEL SYNDROME
     Dosage: 2.4 MILLIGRAM (TED DAILY DOSE MG KG 0.05, TED DOSES PER WEEK 7)
     Route: 065
     Dates: start: 20140626, end: 20140901
  7. DAPTOMYCIN. [Concomitant]
     Active Substance: DAPTOMYCIN
     Indication: BACTERAEMIA
  8. DAPTOMYCIN. [Concomitant]
     Active Substance: DAPTOMYCIN
     Indication: SEPSIS
  9. NAFCILLIN [Concomitant]
     Active Substance: NAFCILLIN SODIUM
     Indication: SEPSIS
  10. ACETAMINOPHEN. [Concomitant]
     Active Substance: ACETAMINOPHEN
  11. SANDOSTATIN LAR DEPOT [Concomitant]
     Active Substance: OCTREOTIDE ACETATE
  12. PREDNISOLONE ACETATE. [Concomitant]
     Active Substance: PREDNISOLONE ACETATE

REACTIONS (2)
  - Pyrexia [Recovered/Resolved with Sequelae]
  - Septic arthritis staphylococcal [Recovered/Resolved]

NARRATIVE: CASE EVENT DATE: 20170907
